FAERS Safety Report 14749901 (Version 10)
Quarter: 2018Q3

REPORT INFORMATION
  Report Type: Spontaneous
  Country: DE (occurrence: DE)
  Receive Date: 20180412
  Receipt Date: 20180731
  Transmission Date: 20181010
  Serious: Yes (Hospitalization, Other)
  Sender: FDA-Public Use
  Company Number: DE-CONCORDIA PHARMACEUTICALS INC.-E2B_00011014

PATIENT
  Sex: Male

DRUGS (29)
  1. VINCRISTINE [Suspect]
     Active Substance: VINCRISTINE
     Dosage: 1 DF,QD
     Route: 042
     Dates: start: 20150710, end: 20150710
  2. CYCLOPHOSPHAMIDE. [Suspect]
     Active Substance: CYCLOPHOSPHAMIDE
     Indication: B-CELL LYMPHOMA
     Dosage: UNK UNK, QD
     Route: 042
     Dates: start: 20150618
  3. METAMIZOL NATRIUM [Concomitant]
     Indication: PAIN
  4. POLYETHYLENE GLYCOL [Concomitant]
     Active Substance: POLYETHYLENE GLYCOLS
     Indication: CONSTIPATION
     Dosage: UNK UNK,QD
     Route: 048
     Dates: start: 20150701, end: 20150703
  5. BISACODYL. [Concomitant]
     Active Substance: BISACODYL
     Indication: CONSTIPATION
     Dosage: 20 GTT, QD
     Route: 048
     Dates: start: 20150701, end: 20150702
  6. DOXORUBICIN [Suspect]
     Active Substance: DOXORUBICIN
     Dosage: UNK UNK, QD
     Route: 042
     Dates: start: 20150710
  7. VINCRISTINE [Suspect]
     Active Substance: VINCRISTINE
     Indication: B-CELL LYMPHOMA
     Dosage: 1 DF,QD
     Route: 042
     Dates: start: 20150618, end: 20150618
  8. CYCLOPHOSPHAMIDE. [Suspect]
     Active Substance: CYCLOPHOSPHAMIDE
     Dosage: 1 DF,QD
     Route: 042
     Dates: start: 20150710
  9. PEGFILGRASTIM [Suspect]
     Active Substance: PEGFILGRASTIM
     Indication: B-CELL LYMPHOMA
     Dosage: 6 MG,QD
     Route: 058
     Dates: start: 20150711, end: 20150711
  10. PEGFILGRASTIM [Suspect]
     Active Substance: PEGFILGRASTIM
     Dosage: 6 MG,QD
     Route: 058
     Dates: start: 20150712, end: 20150712
  11. RITUXIMAB. [Suspect]
     Active Substance: RITUXIMAB
     Dosage: UNK UNK, QD
     Route: 042
     Dates: start: 20150915
  12. SULFAMETHOXAZOLE AND TRIMETHOPRIM [Concomitant]
     Active Substance: SULFAMETHOXAZOLE\TRIMETHOPRIM
     Indication: PROPHYLAXIS
     Dosage: 960 MG, 2 TIMES/WK
     Route: 048
     Dates: start: 201505
  13. CALCIUM FOLINATE [Suspect]
     Active Substance: LEUCOVORIN CALCIUM
     Indication: B-CELL LYMPHOMA
     Dosage: 5 MG, QD (FOR 2 WEEKS)
     Route: 048
     Dates: start: 20150620, end: 20150620
  14. RITUXIMAB. [Suspect]
     Active Substance: RITUXIMAB
     Indication: B-CELL LYMPHOMA
     Dosage: 776 MG,UNK
     Route: 042
     Dates: start: 20150709, end: 20150709
  15. METAMIZOL NATRIUM [Concomitant]
     Indication: PYREXIA
     Dosage: 1 G, AS NECESSARY, FOR 2 DAYS
     Route: 042
     Dates: start: 20150623, end: 20150624
  16. SULFAMETHOXAZOLE AND TRIMETHOPRIM [Concomitant]
     Active Substance: SULFAMETHOXAZOLE\TRIMETHOPRIM
     Dosage: 960 MG,BIW
     Route: 048
     Dates: start: 201505
  17. RITUXIMAB. [Suspect]
     Active Substance: RITUXIMAB
     Dosage: UNK UNK,UNK
     Route: 042
     Dates: start: 20150709
  18. TAMSULOSIN [Concomitant]
     Active Substance: TAMSULOSIN
     Indication: BENIGN PROSTATIC HYPERPLASIA
     Dosage: 4 MG,QD
     Route: 048
  19. PREDNISOLONE. [Suspect]
     Active Substance: PREDNISOLONE
     Indication: B-CELL LYMPHOMA
     Dosage: UNK UNK, QD
     Route: 048
     Dates: start: 20150617, end: 20150622
  20. CALCIUM FOLINATE [Suspect]
     Active Substance: LEUCOVORIN CALCIUM
     Dosage: 5 MG, QD (FOR 2 WEEKS)
     Route: 048
     Dates: start: 201505, end: 201505
  21. DOXORUBICIN [Suspect]
     Active Substance: DOXORUBICIN
     Indication: B-CELL LYMPHOMA
     Dosage: UNK UNK, QD
     Route: 042
     Dates: start: 20150618
  22. RITUXIMAB. [Suspect]
     Active Substance: RITUXIMAB
     Dosage: UNK UNK,UNK
     Route: 042
     Dates: start: 20150617
  23. FOLIC ACID. [Concomitant]
     Active Substance: FOLIC ACID
     Indication: PROPHYLAXIS
     Dosage: 5 MG, Q2WK
     Route: 048
     Dates: start: 201505
  24. SULFAMETHOXAZOLE AND TRIMETHOPRIM [Concomitant]
     Active Substance: SULFAMETHOXAZOLE\TRIMETHOPRIM
     Dosage: 960 MG, 2 TIMES/WK
     Route: 048
     Dates: start: 201505
  25. PREDNISOLONE. [Suspect]
     Active Substance: PREDNISOLONE
     Dosage: UNK UNK, QD
     Route: 048
     Dates: start: 20150709, end: 20150713
  26. PEGFILGRASTIM [Suspect]
     Active Substance: PEGFILGRASTIM
     Dosage: 6 MG,QD
     Route: 058
     Dates: start: 20150621, end: 20150621
  27. RAMIPRIL. [Concomitant]
     Active Substance: RAMIPRIL
     Indication: HYPERTENSION
     Dosage: 5 MG, BID
     Route: 048
  28. AMLODIPINE [Concomitant]
     Active Substance: AMLODIPINE BESYLATE
     Indication: AORTIC VALVE INCOMPETENCE
     Dosage: 5 MG,QD
     Route: 048
  29. COLECALCIFEROL [Concomitant]
     Active Substance: CHOLECALCIFEROL
     Indication: VITAMIN D DEFICIENCY
     Dosage: 2000 IU,QW
     Route: 048
     Dates: start: 201505

REACTIONS (4)
  - Urinary tract infection [Recovered/Resolved]
  - Sepsis [Recovered/Resolved]
  - Urinary tract infection [Recovered/Resolved]
  - Urinary tract infection [Unknown]

NARRATIVE: CASE EVENT DATE: 20150623
